FAERS Safety Report 15289557 (Version 1)
Quarter: 2018Q3

REPORT INFORMATION
  Report Type: Spontaneous
  Country: US (occurrence: US)
  Receive Date: 20180803
  Receipt Date: 20180803
  Transmission Date: 20181010
  Serious: Yes (Disabling, Other)
  Sender: FDA-Public Use
  Company Number: None

PATIENT
  Age: 51 Year
  Sex: Female
  Weight: 72 kg

DRUGS (8)
  1. LEVOTHYROXINE. [Concomitant]
     Active Substance: LEVOTHYROXINE
  2. MULTIVITAMIN [Concomitant]
     Active Substance: VITAMINS
  3. PROLIA [Suspect]
     Active Substance: DENOSUMAB
     Indication: FRACTURE
     Dosage: ?          OTHER FREQUENCY:EVERY 6 MONTHS;?
     Route: 030
     Dates: start: 20170901, end: 20180430
  4. CALCIUM [Concomitant]
     Active Substance: CALCIUM
  5. PROLIA [Suspect]
     Active Substance: DENOSUMAB
     Indication: OSTEOPOROSIS
     Dosage: ?          OTHER FREQUENCY:EVERY 6 MONTHS;?
     Route: 030
     Dates: start: 20170901, end: 20180430
  6. IBUPROFEN. [Concomitant]
     Active Substance: IBUPROFEN
  7. VITAMIN D [Concomitant]
     Active Substance: CHOLECALCIFEROL
  8. MAGNESIUM [Concomitant]
     Active Substance: MAGNESIUM

REACTIONS (9)
  - Exostosis [None]
  - Gait disturbance [None]
  - Myalgia [None]
  - Arthralgia [None]
  - Meniscus injury [None]
  - Osteonecrosis [None]
  - Pain [None]
  - Plantar fasciitis [None]
  - Restless legs syndrome [None]

NARRATIVE: CASE EVENT DATE: 20170901
